FAERS Safety Report 5824002-3 (Version None)
Quarter: 2008Q3

REPORT INFORMATION
  Report Type: 
  Country: None (occurrence: None)
  Receive Date: 20080728
  Receipt Date: 20080725
  Transmission Date: 20090109
  Serious: Yes (Life-Threatening, Hospitalization)
  Sender: FDA-Public Use
  Company Number: DE-JNJFOC-20080603129

PATIENT
  Age: 41 Year
  Sex: Male

DRUGS (8)
  1. HALDOL [Suspect]
     Indication: PSYCHOTIC DISORDER
     Route: 048
  2. CIATYL Z [Interacting]
     Route: 048
  3. CIATYL Z [Interacting]
     Indication: PSYCHOTIC DISORDER
     Route: 048
  4. NEUROCIL [Interacting]
     Route: 048
  5. NEUROCIL [Interacting]
     Indication: DRUG USE FOR UNKNOWN INDICATION
     Route: 048
  6. LORAZEPAM [Concomitant]
     Route: 048
  7. LORAZEPAM [Concomitant]
     Route: 048
  8. LORAZEPAM [Concomitant]
     Indication: DRUG USE FOR UNKNOWN INDICATION
     Route: 048

REACTIONS (11)
  - AKINESIA [None]
  - DEPRESSED LEVEL OF CONSCIOUSNESS [None]
  - DIET REFUSAL [None]
  - DRUG INTERACTION [None]
  - EXTRAPYRAMIDAL DISORDER [None]
  - NEUROLEPTIC MALIGNANT SYNDROME [None]
  - PARKINSONISM [None]
  - PNEUMONIA [None]
  - SALIVARY HYPERSECRETION [None]
  - URINARY TRACT INFECTION [None]
  - VOMITING [None]
